FAERS Safety Report 7867549-0 (Version None)
Quarter: 2011Q4

REPORT INFORMATION
  Report Type: 
  Country: None (occurrence: None)
  Receive Date: 20111028
  Receipt Date: 20111021
  Transmission Date: 20120403
  Serious: Yes (Other)
  Sender: FDA-Public Use
  Company Number: PHHO2011DE17811

PATIENT
  Sex: Female
  Weight: 146 kg

DRUGS (4)
  1. VALETTE [Concomitant]
     Dosage: 0.003 MG, BID
     Route: 048
     Dates: start: 20110401
  2. BACLOFEN [Concomitant]
     Indication: MUSCLE SPASTICITY
     Dosage: 150 MG, BID
     Route: 048
     Dates: start: 20100902
  3. FTY [Suspect]
     Indication: MULTIPLE SCLEROSIS
     Dosage: 0.5 MG, BID
     Route: 048
     Dates: start: 20110518, end: 20111019
  4. VALDOXAN [Concomitant]
     Indication: DEPRESSION
     Dosage: 25 MG, BID
     Route: 048
     Dates: start: 20110915

REACTIONS (1)
  - CERVICAL DYSPLASIA [None]
